FAERS Safety Report 8192403-7 (Version None)
Quarter: 2012Q1

REPORT INFORMATION
  Report Type: 
  Country: None (occurrence: None)
  Receive Date: 20120308
  Receipt Date: 20120307
  Transmission Date: 20120608
  Serious: Yes (Death)
  Sender: FDA-Public Use
  Company Number: US-BIOGENIDEC-2012BI006830

PATIENT
  Age: 51 Year
  Sex: Female

DRUGS (10)
  1. PROMETHAZINE [Concomitant]
  2. TYSABRI [Suspect]
     Indication: MULTIPLE SCLEROSIS
     Route: 042
     Dates: start: 20100527, end: 20120111
  3. EFFEXOR XR [Concomitant]
  4. LISINOPRIL AND HYDROCHLOROTHIAZIDE [Concomitant]
  5. ZOLPIDEM [Concomitant]
  6. SEROQUEL [Concomitant]
  7. BACLOFEN [Concomitant]
  8. FEXOFENADINE [Concomitant]
  9. ALPRAZOLAM [Concomitant]
  10. ACIDOPHILUS [Concomitant]

REACTIONS (2)
  - DEATH [None]
  - MENTAL DISORDER [None]
